FAERS Safety Report 8303528-7 (Version None)
Quarter: 2012Q2

REPORT INFORMATION
  Report Type: 
  Country: None (occurrence: None)
  Receive Date: 20120418
  Receipt Date: 20120402
  Transmission Date: 20120825
  Serious: Yes (Hospitalization)
  Sender: FDA-Public Use
  Company Number: DSA_56123_2012

PATIENT
  Age: 54 Year
  Sex: Male

DRUGS (12)
  1. CARVEDILOL [Concomitant]
  2. AMLODIPINE [Concomitant]
  3. FAMOTIDINE [Concomitant]
  4. TETRAMIDE [Concomitant]
  5. ACETAMINOPHEN (+) CAFFEINE (+) PROMETHAZINE (+) METHYLENEDISALICYLATE [Suspect]
     Indication: PRODUCT USED FOR UNKNOWN INDICATION
     Dosage: (DF ORAL)
     Route: 048
  6. LASIX [Concomitant]
  7. ENALAPRIL MALEATE [Suspect]
     Indication: PRODUCT USED FOR UNKNOWN INDICATION
     Dosage: (5 MG QD ORAL)
     Route: 048
     Dates: start: 20110601, end: 20110701
  8. MUCODYNE [Concomitant]
  9. ALUMINIUM HYDROXIDE W/MG [Concomitant]
  10. YOKU-KAN-SAN [Concomitant]
  11. RISPERDAL [Concomitant]
  12. DESYREL [Concomitant]

REACTIONS (3)
  - ECZEMA [None]
  - OCULOMUCOCUTANEOUS SYNDROME [None]
  - LYMPHOCYTE STIMULATION TEST POSITIVE [None]
